FAERS Safety Report 16597255 (Version 2)
Quarter: 2019Q3

REPORT INFORMATION
  Report Type: Spontaneous
  Country: FR (occurrence: FR)
  Receive Date: 20190719
  Receipt Date: 20190725
  Transmission Date: 20191004
  Serious: Yes (Other)
  Sender: FDA-Public Use
  Company Number: FR-PFIZER INC-2019306436

PATIENT
  Age: 59 Year
  Sex: Male
  Weight: 63 kg

DRUGS (8)
  1. NAPHAZOLINE [Suspect]
     Active Substance: NAPHAZOLINE\NAPHAZOLINE HYDROCHLORIDE
     Dosage: UNK
     Dates: start: 20190602, end: 20190602
  2. RISORDAN [Suspect]
     Active Substance: ISOSORBIDE
     Indication: ANGIOCARDIOGRAM
     Dosage: 1 MG, UNK
     Route: 013
     Dates: start: 20190602, end: 20190602
  3. LIDOCAINE. [Suspect]
     Active Substance: LIDOCAINE
     Indication: ANGIOCARDIOGRAM
     Dosage: 1 ML, UNK
     Route: 058
     Dates: start: 20190602, end: 20190602
  4. ADRENALINE [Suspect]
     Active Substance: EPINEPHRINE
     Dosage: UNK
     Dates: start: 20190602, end: 20190602
  5. HEPARIN [Suspect]
     Active Substance: HEPARIN SODIUM
     Indication: ANGIOCARDIOGRAM
     Dosage: 4000 IU, UNK
     Route: 042
     Dates: start: 20190602, end: 20190602
  6. TRIATEC (RAMIPRIL) [Suspect]
     Active Substance: RAMIPRIL
     Indication: HYPERTENSION
     Dosage: 5 MG, UNK
     Route: 048
     Dates: start: 20190602, end: 20190602
  7. CETYLPYRIDINIUM [Suspect]
     Active Substance: CETYLPYRIDINIUM
     Dosage: UNK
     Dates: start: 20190602, end: 20190602
  8. VISIPAQUE [Suspect]
     Active Substance: IODIXANOL
     Indication: ANGIOCARDIOGRAM
     Dosage: 80 ML, UNK
     Route: 042
     Dates: start: 20190602, end: 20190602

REACTIONS (1)
  - Rash scarlatiniform [Recovered/Resolved]

NARRATIVE: CASE EVENT DATE: 20190603
